FAERS Safety Report 25602632 (Version 1)
Quarter: 2025Q3

REPORT INFORMATION
  Report Type: Spontaneous
  Country: US (occurrence: US)
  Receive Date: 20250724
  Receipt Date: 20250724
  Transmission Date: 20251021
  Serious: No
  Sender: ROCHE
  Company Number: US-ROCHE-10000341769

PATIENT
  Sex: Male
  Weight: 80.29 kg

DRUGS (1)
  1. ACTEMRA ACTPEN [Suspect]
     Active Substance: TOCILIZUMAB
     Indication: Polymyalgia rheumatica
     Dosage: STRENGTH:162MG/0.9M
     Route: 058
     Dates: start: 202411

REACTIONS (2)
  - Weight increased [Unknown]
  - Off label use [Unknown]
